FAERS Safety Report 4820998-7 (Version None)
Quarter: 2005Q4

REPORT INFORMATION
  Report Type: 
  Country: None (occurrence: None)
  Receive Date: 20051104
  Receipt Date: 20050831
  Transmission Date: 20060501
  Serious: Yes (Hospitalization, Disabling)
  Sender: FDA-Public Use
  Company Number: 2005CG01463

PATIENT
  Age: 81 Year
  Sex: Male
  Weight: 60 kg

DRUGS (4)
  1. ATACAND [Suspect]
     Indication: CARDIAC FAILURE
     Route: 048
     Dates: start: 20030101, end: 20050817
  2. CORDARONE [Concomitant]
     Indication: ARRHYTHMIA
     Route: 048
     Dates: start: 20030101
  3. FLECAINIDE ACETATE [Concomitant]
     Indication: ARRHYTHMIA
     Route: 048
     Dates: start: 20030101
  4. VASTAREL [Concomitant]
     Route: 048

REACTIONS (6)
  - ANAEMIA [None]
  - DRUG HYPERSENSITIVITY [None]
  - EOSINOPHILIA [None]
  - THROMBOCYTOPENIA [None]
  - TUBULOINTERSTITIAL NEPHRITIS [None]
  - WEIGHT DECREASED [None]
